FAERS Safety Report 5420702-8 (Version None)
Quarter: 2007Q3

REPORT INFORMATION
  Report Type: 
  Country: None (occurrence: None)
  Receive Date: 20070816
  Receipt Date: 20070802
  Transmission Date: 20080115
  Serious: Yes (Other)
  Sender: FDA-Public Use
  Company Number: 8024175

PATIENT
  Age: 40 Year
  Sex: Female

DRUGS (2)
  1. KEPPRA [Suspect]
     Dosage: 750 MG / D
     Dates: start: 20070101
  2. EPILIM [Suspect]

REACTIONS (6)
  - ALOPECIA [None]
  - FEEDING DISORDER [None]
  - HAEMORRHAGE [None]
  - PLATELET COUNT DECREASED [None]
  - TREMOR [None]
  - WEIGHT DECREASED [None]
